FAERS Safety Report 5624151-9 (Version None)
Quarter: 2008Q1

REPORT INFORMATION
  Report Type: 
  Country: None (occurrence: None)
  Receive Date: 20080213
  Receipt Date: 20080207
  Transmission Date: 20080703
  Serious: Yes (Death)
  Sender: FDA-Public Use
  Company Number: US-BAYER-US-2006-035800

PATIENT
  Age: 67 Year
  Sex: Male

DRUGS (8)
  1. CAMPATH [Suspect]
     Indication: LIVER TRANSPLANT
     Dosage: UNIT DOSE: 30 MG
     Route: 042
     Dates: start: 20050802, end: 20050802
  2. CAMPATH [Suspect]
     Dosage: UNIT DOSE: 30 MG
     Route: 042
     Dates: start: 20050806, end: 20050806
  3. TACROLIMUS [Suspect]
     Indication: PROPHYLAXIS AGAINST TRANSPLANT REJECTION
     Dosage: UNIT DOSE: 1 MG
     Route: 048
     Dates: start: 20050803
  4. ATROVENT [Concomitant]
     Dates: start: 20060116, end: 20060204
  5. PRILOSEC [Concomitant]
     Dates: start: 20060115, end: 20060204
  6. COMBIVENT /GFR/ [Concomitant]
     Dates: start: 20060116, end: 20060204
  7. AMIODARONE HCL [Concomitant]
     Dates: start: 20060116, end: 20060204
  8. DAPSONE [Concomitant]
     Dates: start: 20060201

REACTIONS (1)
  - RESPIRATORY ARREST [None]
